FAERS Safety Report 15296530 (Version 1)
Quarter: 2020Q3

REPORT INFORMATION
  Report Type: Report from Study
  Country: RU (occurrence: RU)
  Receive Date: 20180820
  Receipt Date: 20180820
  Transmission Date: 20201104
  Serious: Yes (Hospitalization)
  Sender: FDA-Public Use
  Company Number: RU-JNJFOC-20161223640

PATIENT
  Age: 28 Year
  Sex: Female
  Weight: 48.8 kg

DRUGS (2)
  1. USTEKINUMAB [Suspect]
     Active Substance: USTEKINUMAB
     Route: 058
  2. USTEKINUMAB [Suspect]
     Active Substance: USTEKINUMAB
     Indication: COLITIS ULCERATIVE
     Route: 058
     Dates: start: 20160407

REACTIONS (1)
  - Salpingitis [Recovered/Resolved]

NARRATIVE: CASE EVENT DATE: 20161223
